FAERS Safety Report 7918743-1 (Version None)
Quarter: 2011Q4

REPORT INFORMATION
  Report Type: 
  Country: None (occurrence: None)
  Receive Date: 20111116
  Receipt Date: 20111111
  Transmission Date: 20120403
  Serious: Yes (Hospitalization)
  Sender: FDA-Public Use
  Company Number: US-BRISTOL-MYERS SQUIBB COMPANY-16218414

PATIENT
  Age: 70 Year
  Sex: Male

DRUGS (11)
  1. CARVEDILOL [Concomitant]
     Indication: HYPERTENSION
  2. TERAZOSIN HCL [Concomitant]
  3. DIGOXIN [Concomitant]
  4. FAMOTIDINE [Concomitant]
     Indication: GASTROOESOPHAGEAL REFLUX DISEASE
  5. SIMVASTATIN [Suspect]
     Indication: PROPHYLAXIS
  6. HYDRALAZINE HCL [Concomitant]
     Indication: HYPERTENSION
  7. ASPIRIN [Suspect]
     Dates: start: 20100601
  8. LISINOPRIL [Concomitant]
     Indication: HYPERTENSION
  9. COUMADIN [Suspect]
     Indication: COAGULOPATHY
     Dates: start: 20100601, end: 20110101
  10. PLAVIX [Suspect]
     Indication: COAGULOPATHY
     Dates: start: 20100601
  11. AMIODARONE HCL [Suspect]
     Indication: ATRIAL FIBRILLATION
     Dosage: INITIALLY GIVEN 200MG BID UNTIL 25SEP11,THEN REDUCED TO 200MG QD ON 26SEP11,IDENTIFIER:E144
     Dates: start: 20110701

REACTIONS (2)
  - RETINAL TEAR [None]
  - ANAEMIA [None]
